FAERS Safety Report 20819130 (Version 1)
Quarter: 2022Q2

REPORT INFORMATION
  Report Type: Spontaneous
  Country: US (occurrence: None)
  Receive Date: 20220511
  Receipt Date: 20220511
  Transmission Date: 20220721
  Serious: Yes (Life-Threatening, Hospitalization)
  Sender: FDA-Public Use
  Company Number: None

PATIENT
  Age: 80 Year
  Sex: Male
  Weight: 65.25 kg

DRUGS (6)
  1. LIDOCAINE [Suspect]
     Active Substance: LIDOCAINE
     Indication: Dental operation
     Dates: start: 20220509, end: 20220509
  2. Aorvastatin [Concomitant]
  3. CARVEDILOL [Concomitant]
     Active Substance: CARVEDILOL
  4. CLOPIDOGREL [Concomitant]
     Active Substance: CLOPIDOGREL BISULFATE
  5. HYDROCHLOROTHIAZIDE\LISINOPRIL [Concomitant]
     Active Substance: HYDROCHLOROTHIAZIDE\LISINOPRIL
  6. centrum silver for men multivitamin [Concomitant]

REACTIONS (7)
  - Hypoxia [None]
  - Dyspnoea [None]
  - Emotional distress [None]
  - Anaphylactic reaction [None]
  - Pulmonary oedema [None]
  - Toxicity to various agents [None]
  - Recalled product administered [None]

NARRATIVE: CASE EVENT DATE: 20220509
